FAERS Safety Report 5339058-4 (Version None)
Quarter: 2007Q2

REPORT INFORMATION
  Report Type: 
  Country: None (occurrence: None)
  Receive Date: 20070330
  Receipt Date: 20061129
  Transmission Date: 20071010
  Serious: No
  Sender: FDA-Public Use
  Company Number: 2006UW26561

PATIENT
  Age: 40 Year
  Sex: Female

DRUGS (2)
  1. ZESTRIL [Suspect]
  2. PROCARDIA [Suspect]

REACTIONS (1)
  - CEREBROVASCULAR ACCIDENT [None]
